FAERS Safety Report 24076493 (Version 3)
Quarter: 2024Q4

REPORT INFORMATION
  Report Type: Report from Study
  Country: DE (occurrence: DE)
  Receive Date: 20240711
  Receipt Date: 20241212
  Transmission Date: 20250115
  Serious: Yes (Other)
  Sender: AUROBINDO
  Company Number: DE-INDIVIOR EUROPE LIMITED-INDV-145811-2024

PATIENT
  Age: 36 Year
  Sex: Male

DRUGS (8)
  1. QUETIAPINE [Suspect]
     Active Substance: QUETIAPINE
     Indication: Drug abuse
     Dosage: UNK
     Route: 065
  2. BUPRENORPHINE [Suspect]
     Active Substance: BUPRENORPHINE
     Indication: Drug abuse
     Dosage: UNK
     Route: 065
  3. DIAZEPAM [Suspect]
     Active Substance: DIAZEPAM
     Indication: Drug abuse
     Dosage: UNK
     Route: 065
  4. GABAPENTIN [Suspect]
     Active Substance: GABAPENTIN
     Indication: Drug abuse
     Dosage: UNK
     Route: 065
  5. NORDAZEPAM [Suspect]
     Active Substance: NORDAZEPAM
     Indication: Drug abuse
     Dosage: UNK
     Route: 065
  6. OXAZEPAM [Suspect]
     Active Substance: OXAZEPAM
     Indication: Drug abuse
     Dosage: UNK
     Route: 065
  7. TEMAZEPAM [Suspect]
     Active Substance: TEMAZEPAM
     Indication: Drug abuse
     Dosage: UNK
     Route: 065
  8. CLONAZEPAM [Suspect]
     Active Substance: CLONAZEPAM
     Indication: Drug abuse
     Dosage: UNK
     Route: 065

REACTIONS (8)
  - Substance abuse [Unknown]
  - Lethargy [Unknown]
  - Bradykinesia [Unknown]
  - Drug abuse [Unknown]
  - Aggression [Unknown]
  - Agitation [Unknown]
  - Confusional state [Unknown]
  - Restlessness [Unknown]
